FAERS Safety Report 17524673 (Version 1)
Quarter: 2020Q1

REPORT INFORMATION
  Report Type: Spontaneous
  Country: DE (occurrence: DE)
  Receive Date: 20200310
  Receipt Date: 20200310
  Transmission Date: 20200409
  Serious: Yes (Other)
  Sender: FDA-Public Use
  Company Number: DE-MYLANLABS-2020M1025347

PATIENT
  Sex: Female

DRUGS (3)
  1. QUILONUM                           /00033702/ [Concomitant]
     Active Substance: LITHIUM CARBONATE
     Dosage: 50 MILLIGRAM, BID (2 X 50 MG)
     Route: 048
  2. ESCITALOPRAM [Suspect]
     Active Substance: ESCITALOPRAM OXALATE
     Indication: DEPRESSION
     Dosage: 5 MILLIGRAM
  3. SYCREST [Suspect]
     Active Substance: ASENAPINE MALEATE
     Indication: MANIA
     Dosage: 10 MILLIGRAM, BID (10 IN THE MORNING AND 10 IN THE EVENING)
     Route: 048

REACTIONS (5)
  - Influenza [Unknown]
  - Feeling abnormal [Unknown]
  - Anaphylactic shock [Recovered/Resolved]
  - Back pain [Unknown]
  - Depressed mood [Unknown]
